FAERS Safety Report 5916539-3 (Version None)
Quarter: 2008Q4

REPORT INFORMATION
  Report Type: 
  Country: None (occurrence: None)
  Receive Date: 20081013
  Receipt Date: 20081003
  Transmission Date: 20090506
  Serious: Yes (Death)
  Sender: FDA-Public Use
  Company Number: B0539582A

PATIENT
  Age: 84 Year
  Sex: Female
  Weight: 80 kg

DRUGS (5)
  1. ARIXTRA [Suspect]
     Indication: DRUG USE FOR UNKNOWN INDICATION
     Route: 058
     Dates: end: 20080826
  2. TAHOR [Concomitant]
     Route: 065
  3. FLECAINE [Concomitant]
     Route: 065
  4. LEVOTHYROX [Concomitant]
     Route: 065
  5. KERLONE [Concomitant]
     Route: 065

REACTIONS (3)
  - CEREBRAL HAEMATOMA [None]
  - CEREBRAL HAEMORRHAGE [None]
  - COMA [None]
